FAERS Safety Report 23503535 (Version 2)
Quarter: 2024Q1

REPORT INFORMATION
  Report Type: Report from Study
  Country: US (occurrence: US)
  Receive Date: 20240208
  Receipt Date: 20240216
  Transmission Date: 20240410
  Serious: No
  Sender: FDA-Public Use
  Company Number: US-ABBVIE-5628953

PATIENT
  Sex: Female

DRUGS (4)
  1. VENCLEXTA [Suspect]
     Active Substance: VENETOCLAX
     Indication: Pancytopenia
     Dosage: FORM STRENGTH: 20 MILLIGRAM
     Route: 048
     Dates: start: 20240130, end: 20240205
  2. VENCLEXTA [Suspect]
     Active Substance: VENETOCLAX
     Indication: Pancytopenia
     Dosage: FORM STRENGTH: 50 MILLIGRAM
     Route: 048
     Dates: start: 20240206
  3. VENCLEXTA [Suspect]
     Active Substance: VENETOCLAX
     Indication: Pancytopenia
     Route: 048
  4. OBINUTUZUMAB [Concomitant]
     Active Substance: OBINUTUZUMAB
     Indication: Chronic lymphocytic leukaemia

REACTIONS (5)
  - Platelet count decreased [Not Recovered/Not Resolved]
  - Petechiae [Not Recovered/Not Resolved]
  - White blood cell count decreased [Unknown]
  - Haemoglobin decreased [Not Recovered/Not Resolved]
  - Red blood cell count decreased [Unknown]

NARRATIVE: CASE EVENT DATE: 20240101
